FAERS Safety Report 13460501 (Version 1)
Quarter: 2017Q2

REPORT INFORMATION
  Report Type: Spontaneous
  Country: US (occurrence: US)
  Receive Date: 20170420
  Receipt Date: 20170420
  Transmission Date: 20170830
  Serious: No
  Sender: FDA-Public Use
  Company Number: US-PFIZER INC-2017168199

PATIENT
  Sex: Female

DRUGS (1)
  1. CRISABOROLE [Suspect]
     Active Substance: CRISABOROLE
     Indication: DERMATITIS ATOPIC
     Dosage: 2 %
     Route: 061

REACTIONS (2)
  - Drug effect decreased [Unknown]
  - Application site pain [Unknown]
